FAERS Safety Report 5246468-2 (Version None)
Quarter: 2007Q1

REPORT INFORMATION
  Report Type: 
  Country: None (occurrence: None)
  Receive Date: 20070216
  Receipt Date: 20070207
  Transmission Date: 20070707
  Serious: Yes (Hospitalization)
  Sender: FDA-Public Use
  Company Number: 236299

PATIENT
  Age: 42 Year
  Sex: Male
  Weight: 158.7 kg

DRUGS (7)
  1. XOLAIR [Suspect]
     Indication: ASTHMA
     Dosage: 2/MONTH, SUBCUTANEOUS
     Route: 058
     Dates: start: 20060901
  2. CATAPRES [Concomitant]
  3. CATAPRES-TTS-1 [Concomitant]
  4. BENICAR [Concomitant]
  5. ULTRACET (ACETAMINOPHEN, TRAMADOL HYDROCHLORIDE) [Concomitant]
  6. NEXIUM [Concomitant]
  7. LEXAPRO [Concomitant]

REACTIONS (1)
  - UPPER RESPIRATORY TRACT INFECTION [None]
